FAERS Safety Report 11039590 (Version 7)
Quarter: 2015Q4

REPORT INFORMATION
  Report Type: Report from Study
  Country: FR (occurrence: FR)
  Receive Date: 20150416
  Receipt Date: 20151217
  Transmission Date: 20160304
  Serious: Yes (Hospitalization)
  Sender: FDA-Public Use
  Company Number: FR-BAYER-2015-032948

PATIENT
  Age: 51 Year
  Sex: Male
  Weight: 68 kg

DRUGS (22)
  1. FORTIMEL [Concomitant]
     Active Substance: DIETARY SUPPLEMENT
     Indication: PROPHYLAXIS
     Dosage: DAILY DOSE 3 PACKS
     Route: 048
     Dates: start: 20141201
  2. SKENAN [Concomitant]
     Active Substance: MORPHINE SULFATE
     Indication: PAIN
     Dosage: DAILY DOSE 160 MG
     Route: 048
     Dates: start: 20150428
  3. IMOVANE [Concomitant]
     Active Substance: ZOPICLONE
     Indication: PROPHYLAXIS
     Dosage: DAILY DOSE 7.5 MG
     Route: 048
     Dates: start: 20150428
  4. REGORAFENIB [Suspect]
     Active Substance: REGORAFENIB
     Indication: HEPATOCELLULAR CARCINOMA
     Dosage: 120 MG, QD
     Route: 048
     Dates: start: 20150210, end: 20150215
  5. OXYCONTIN [Concomitant]
     Active Substance: OXYCODONE HYDROCHLORIDE
     Indication: ABDOMINAL PAIN UPPER
     Dosage: DAILY DOSE 40 MG
     Route: 048
     Dates: start: 20150203
  6. PRIMPERAN [Concomitant]
     Active Substance: METOCLOPRAMIDE HYDROCHLORIDE
     Indication: VOMITING
     Dosage: DAILY DOSE 10 MG
     Route: 048
     Dates: start: 20150126
  7. ZOPHREN [Concomitant]
     Active Substance: ONDANSETRON
     Indication: NAUSEA
     Dosage: DAILY DOSE 8 MG
     Route: 048
     Dates: start: 20150316
  8. KARDEGIC [ACETYLSALICYLATE LYSINE] [Concomitant]
     Indication: PERIPHERAL ARTERIAL OCCLUSIVE DISEASE
     Dosage: DAILY DOSE 75 MG
     Route: 048
     Dates: start: 20141201
  9. MOPRALPRO 20MG [Concomitant]
     Active Substance: OMEPRAZOLE
     Indication: PAIN PROPHYLAXIS
     Dosage: DAILY DOSE 40 MG
     Route: 048
     Dates: start: 20150304
  10. REGORAFENIB [Suspect]
     Active Substance: REGORAFENIB
     Indication: HEPATOCELLULAR CARCINOMA
     Dosage: 80 MG, QD
     Route: 048
     Dates: start: 20150401, end: 20150420
  11. OXYNORM [Concomitant]
     Active Substance: OXYCODONE HYDROCHLORIDE
     Indication: ABDOMINAL PAIN UPPER
     Dosage: 5 MG, TID
     Route: 048
     Dates: start: 20141201, end: 20150202
  12. OXYCONTIN [Concomitant]
     Active Substance: OXYCODONE HYDROCHLORIDE
     Indication: ABDOMINAL PAIN UPPER
     Dosage: DAILY DOSE 15 MG
     Route: 048
     Dates: start: 20150119, end: 20150202
  13. LYRICA [Concomitant]
     Active Substance: PREGABALIN
     Indication: MUSCULOSKELETAL CHEST PAIN
     Dosage: DAILY DOSE 150 MG
     Route: 048
     Dates: start: 20150427
  14. MOVICOL [MACROGOL,POTASSIUM CHLORIDE,SODIUM BICARBONATE,SODIUM CHL [Concomitant]
     Indication: CONSTIPATION PROPHYLAXIS
     Dosage: DAILY DOSE 2
     Route: 048
     Dates: start: 20141201
  15. ACTISKENAN [Concomitant]
     Active Substance: MORPHINE SULFATE
     Indication: PAIN
     Dosage: 120 MG, PRN
     Route: 048
     Dates: start: 20150428
  16. DOLIPRANE [Concomitant]
     Active Substance: ACETAMINOPHEN
     Indication: ABDOMINAL PAIN UPPER
     Dosage: DAILY DOSE 1 G
     Route: 048
     Dates: start: 20150304
  17. REGORAFENIB [Suspect]
     Active Substance: REGORAFENIB
     Indication: HEPATOCELLULAR CARCINOMA
     Dosage: 80 MG, QD
     Route: 048
     Dates: start: 20150305, end: 20150322
  18. REGORAFENIB [Suspect]
     Active Substance: REGORAFENIB
     Indication: HEPATOCELLULAR CARCINOMA
     Dosage: 80 MG, QD
     Route: 048
     Dates: start: 20150428
  19. ZOPHREN [Concomitant]
     Active Substance: ONDANSETRON
     Indication: VOMITING
     Dosage: 8 MG DAILY
     Route: 048
     Dates: start: 20150303
  20. OXYNORM [Concomitant]
     Active Substance: OXYCODONE HYDROCHLORIDE
     Indication: ABDOMINAL PAIN UPPER
     Dosage: DAILY DOSE 10 MG
     Route: 048
     Dates: start: 20150203
  21. XANAX [Concomitant]
     Active Substance: ALPRAZOLAM
     Indication: ANXIETY
     Dosage: DAILY DOSE .5 MG
     Route: 048
     Dates: start: 20150428
  22. REGORAFENIB [Suspect]
     Active Substance: REGORAFENIB
     Indication: HEPATOCELLULAR CARCINOMA
     Dosage: 160 MG, QD
     Route: 048
     Dates: start: 20150126, end: 20150209

REACTIONS (3)
  - Malnutrition [None]
  - Back pain [Recovering/Resolving]
  - Malnutrition [Recovering/Resolving]

NARRATIVE: CASE EVENT DATE: 20150227
